FAERS Safety Report 17009356 (Version 1)
Quarter: 2019Q4

REPORT INFORMATION
  Report Type: Spontaneous
  Country: CN (occurrence: CN)
  Receive Date: 20191108
  Receipt Date: 20191108
  Transmission Date: 20200122
  Serious: Yes (Other)
  Sender: FDA-Public Use
  Company Number: CN-FRESENIUS KABI-FK201912377

PATIENT
  Age: 90 Year
  Sex: Male

DRUGS (1)
  1. INTRALIPID [Suspect]
     Active Substance: EGG PHOSPHOLIPIDS\GLYCERIN\SOYBEAN OIL
     Indication: NUTRITIONAL SUPPLEMENTATION
     Dosage: 250 ML, 100ML/H,QD
     Route: 041
     Dates: start: 20191013, end: 20191013

REACTIONS (6)
  - Heart rate increased [Recovering/Resolving]
  - Chills [Unknown]
  - Dysphoria [Recovering/Resolving]
  - Pyrexia [Unknown]
  - Blood pressure increased [Recovering/Resolving]
  - Temperature intolerance [Unknown]

NARRATIVE: CASE EVENT DATE: 20191013
